FAERS Safety Report 9412853 (Version 2)
Quarter: 2014Q2

REPORT INFORMATION
  Report Type: Spontaneous
  Country: US (occurrence: US)
  Receive Date: 20130722
  Receipt Date: 20140409
  Transmission Date: 20141212
  Serious: Yes (Hospitalization)
  Sender: FDA-Public Use
  Company Number: PHHY2013US075925

PATIENT
  Age: 34 Year
  Sex: Male

DRUGS (6)
  1. CHLORPROMAZINE [Suspect]
     Dosage: 100 MG, BID
  2. HALOPERIDOL [Suspect]
     Dosage: 2 MG IN THE MORNING AND 5 MG AT BEDTIME
  3. HYDROXYZINE [Suspect]
  4. CITALOPRAM [Suspect]
  5. VALPROIC ACID [Suspect]
  6. BENZTROPINE [Suspect]
     Dosage: 2 MG, BID

REACTIONS (3)
  - Neuroleptic malignant syndrome [Unknown]
  - Loss of consciousness [Unknown]
  - Body temperature increased [Recovering/Resolving]
